FAERS Safety Report 9045368 (Version 1)
Quarter: 2013Q1

REPORT INFORMATION
  Report Type: Spontaneous
  Country: IT (occurrence: IT)
  Receive Date: 20130131
  Receipt Date: 20130131
  Transmission Date: 20140127
  Serious: Yes (Hospitalization)
  Sender: FDA-Public Use
  Company Number: IT-BAYER-2013-008659

PATIENT
  Age: 72 Year
  Sex: Male

DRUGS (5)
  1. CARDIOASPIRIN [Suspect]
     Indication: MYOCARDIAL ISCHAEMIA
     Dosage: 100 MG, QD
     Route: 048
     Dates: start: 20110630, end: 20120128
  2. COUMADIN [Suspect]
     Indication: MYOCARDIAL ISCHAEMIA
     Dosage: UNK
     Route: 048
     Dates: start: 20110630, end: 20120128
  3. COUMADIN [Suspect]
     Indication: MYOCARDIAL ISCHAEMIA
     Dosage: UNK
     Route: 048
  4. NAPRILENE [Concomitant]
     Dosage: DAILY DOSE .5 DF
     Route: 048
  5. DILATREND [Concomitant]
     Dosage: UNK
     Route: 048

REACTIONS (2)
  - Dyspnoea [Unknown]
  - Epistaxis [Unknown]
